FAERS Safety Report 24301026 (Version 1)
Quarter: 2024Q3

REPORT INFORMATION
  Report Type: Spontaneous
  Country: US (occurrence: US)
  Receive Date: 20240910
  Receipt Date: 20240910
  Transmission Date: 20241016
  Serious: Yes (Other)
  Sender: AMGEN
  Company Number: US-AMGEN-USASP2024177508

PATIENT
  Age: 81 Year
  Sex: Male

DRUGS (2)
  1. DARBEPOETIN ALFA [Suspect]
     Active Substance: DARBEPOETIN ALFA
     Indication: Myelodysplastic syndrome with multilineage dysplasia
     Dosage: UNK
     Route: 065
  2. AZACITIDINE [Concomitant]
     Active Substance: AZACITIDINE
     Indication: Myelodysplastic syndrome
     Dosage: 10 CYCLES
     Route: 065
     Dates: start: 201902, end: 201910

REACTIONS (2)
  - Myelodysplastic syndrome with multilineage dysplasia [Unknown]
  - Myelofibrosis [Unknown]
